FAERS Safety Report 23195766 (Version 1)
Quarter: 2023Q4

REPORT INFORMATION
  Report Type: Spontaneous
  Country: JP (occurrence: JP)
  Receive Date: 20231117
  Receipt Date: 20231117
  Transmission Date: 20240110
  Serious: Yes (Death, Other)
  Sender: FDA-Public Use
  Company Number: JP-GILEAD-2023-0651171

PATIENT
  Age: 26 Year
  Sex: Female

DRUGS (3)
  1. VEKLURY [Suspect]
     Active Substance: REMDESIVIR
     Indication: COVID-19
     Dosage: UNK
     Route: 042
  2. PREDNISOLONE [Concomitant]
     Active Substance: PREDNISOLONE
     Route: 048
  3. AZATHIOPRINE [Concomitant]
     Active Substance: AZATHIOPRINE
     Route: 048

REACTIONS (1)
  - Sepsis [Fatal]
